FAERS Safety Report 20424859 (Version 1)
Quarter: 2022Q1

REPORT INFORMATION
  Report Type: Report from Study
  Country: US (occurrence: US)
  Receive Date: 20220204
  Receipt Date: 20220204
  Transmission Date: 20220423
  Serious: No
  Sender: FDA-Public Use
  Company Number: US-EXELIXIS-CABO-20035958

PATIENT
  Sex: Female

DRUGS (1)
  1. CABOMETYX [Suspect]
     Active Substance: CABOZANTINIB S-MALATE
     Indication: Renal cancer
     Dosage: 60 MG, QD
     Route: 048
     Dates: start: 202010

REACTIONS (8)
  - Tenderness [Unknown]
  - Dry throat [Unknown]
  - Rash macular [Unknown]
  - Alopecia [Unknown]
  - Headache [Unknown]
  - Dysphonia [Unknown]
  - Constipation [Unknown]
  - Nausea [Unknown]
